FAERS Safety Report 6885111-3 (Version None)
Quarter: 2010Q3

REPORT INFORMATION
  Report Type: 
  Country: None (occurrence: None)
  Receive Date: 20100729
  Receipt Date: 20100729
  Transmission Date: 20110219
  Serious: Yes (Other)
  Sender: FDA-Public Use
  Company Number: None

PATIENT
  Age: 64 Year
  Sex: Male
  Weight: 78.6 kg

DRUGS (2)
  1. SULFAMETHOXAZOLE AND TRIMETHOPRIM [Suspect]
     Indication: LOCALISED INFECTION
     Dosage: 20 DS TABLETS TWICE A DAY ORAL
     Route: 048
     Dates: start: 20100723
  2. SULFAMETHOXAZOLE AND TRIMETHOPRIM [Suspect]
     Indication: LOCALISED INFECTION
     Dosage: 20 DS TABLETS TWICE A DAY ORAL
     Route: 048
     Dates: start: 20100726

REACTIONS (1)
  - ARRHYTHMIA [None]
